FAERS Safety Report 4745601-6 (Version None)
Quarter: 2005Q3

REPORT INFORMATION
  Report Type: 
  Country: None (occurrence: None)
  Receive Date: 20050815
  Receipt Date: 20050801
  Transmission Date: 20060218
  Serious: Yes (Life-Threatening, Hospitalization, Disabling, Other)
  Sender: FDA-Public Use
  Company Number: 2005109684

PATIENT
  Age: 56 Year
  Sex: Female
  Weight: 64.8644 kg

DRUGS (18)
  1. NEURONTIN [Suspect]
     Indication: CONVULSION
     Dosage: 900 MG (300 MG, 3 IN 1 D), ORAL
     Route: 048
  2. TEGRETOL (CARBAMAEPINE) [Concomitant]
  3. AVAPRO [Concomitant]
  4. NORVASC [Concomitant]
  5. PREMARIN [Concomitant]
  6. XANAX [Concomitant]
  7. ZOLOFT [Concomitant]
  8. SYNTHROID [Concomitant]
  9. NEXIUM [Concomitant]
  10. BENTYL [Concomitant]
  11. FIORINAL [Concomitant]
  12. DARVOCET-N (DEXTROPROPOXPHENE NAPSILATE, PARACETAMOL) [Concomitant]
  13. COMPAZINE [Concomitant]
  14. CLARINEX [Concomitant]
  15. MYSOLINE ^ASTRA^ (PRIMIDONE) [Concomitant]
  16. DURAGESIC-100 [Concomitant]
  17. MAGNESIUM CHLORIDE ANHYDROUS (MAGNESIUM CHLORIDE ANHYDROUS) [Concomitant]
  18. THERAGRAN-M (MINERALS NOS, VITAMINS NOS) [Concomitant]

REACTIONS (6)
  - ACUTE RESPIRATORY DISTRESS SYNDROME [None]
  - COMA [None]
  - CRYING [None]
  - INSOMNIA [None]
  - PAIN [None]
  - PNEUMONIA [None]
